FAERS Safety Report 11250316 (Version 1)
Quarter: 2015Q3

REPORT INFORMATION
  Report Type: Spontaneous
  Country: US (occurrence: US)
  Receive Date: 20150708
  Receipt Date: 20150708
  Transmission Date: 20151125
  Serious: No
  Sender: FDA-Public Use
  Company Number: US-ELI_LILLY_AND_COMPANY-US201506006274

PATIENT
  Sex: Female
  Weight: 83 kg

DRUGS (5)
  1. ADCIRCA [Suspect]
     Active Substance: TADALAFIL
     Indication: PRODUCT USED FOR UNKNOWN INDICATION
     Dosage: UNK, UNKNOWN
     Route: 065
     Dates: start: 20150602
  2. COUMADIN [Concomitant]
     Active Substance: WARFARIN SODIUM
     Dosage: UNK, UNKNOWN
     Route: 065
  3. TRACLEER [Concomitant]
     Active Substance: BOSENTAN
     Dosage: UNK, UNKNOWN
     Route: 065
  4. OPSUMIT [Concomitant]
     Active Substance: MACITENTAN
     Dosage: UNK, UNKNOWN
     Route: 065
  5. TYVASO [Suspect]
     Active Substance: TREPROSTINIL
     Indication: PULMONARY ARTERIAL HYPERTENSION
     Dosage: UNK, QID
     Route: 055
     Dates: start: 20100105

REACTIONS (3)
  - Muscular weakness [Unknown]
  - Influenza [Unknown]
  - Myalgia [Unknown]
